FAERS Safety Report 26071946 (Version 2)
Quarter: 2025Q4

REPORT INFORMATION
  Report Type: Spontaneous
  Country: US (occurrence: US)
  Receive Date: 20251120
  Receipt Date: 20251202
  Transmission Date: 20260118
  Serious: No
  Sender: PFIZER
  Company Number: US-PFIZER INC-202500225195

PATIENT
  Sex: Male

DRUGS (2)
  1. DOBUTAMINE HYDROCHLORIDE [Suspect]
     Active Substance: DOBUTAMINE HYDROCHLORIDE
     Indication: Stress echocardiogram
     Dosage: UNK
  2. DEFINITY [Suspect]
     Active Substance: PERFLUTREN
     Dosage: UNK
     Dates: start: 20220818, end: 20220818

REACTIONS (3)
  - Hypertension [Unknown]
  - Arthralgia [Unknown]
  - Back pain [Unknown]

NARRATIVE: CASE EVENT DATE: 20220818
